FAERS Safety Report 16121778 (Version 4)
Quarter: 2020Q1

REPORT INFORMATION
  Report Type: Report from Study
  Country: US (occurrence: US)
  Receive Date: 20190327
  Receipt Date: 20200107
  Transmission Date: 20200409
  Serious: Yes (Hospitalization, Other)
  Sender: FDA-Public Use
  Company Number: PHEH2019US012614

PATIENT
  Age: 26 Year
  Sex: Male
  Weight: 110.2 kg

DRUGS (2)
  1. ILARIS [Suspect]
     Active Substance: CANAKINUMAB
     Indication: PYREXIA
     Dosage: 300 MG, QMO
     Route: 058
     Dates: start: 20190110
  2. ILARIS [Suspect]
     Active Substance: CANAKINUMAB
     Indication: TUMOUR NECROSIS FACTOR RECEPTOR-ASSOCIATED PERIODIC SYNDROME
     Dosage: EVERY 4 WEEKS
     Route: 058

REACTIONS (3)
  - Intestinal obstruction [Recovering/Resolving]
  - Rhabdomyolysis [Unknown]
  - Pain [Unknown]

NARRATIVE: CASE EVENT DATE: 20190131
